FAERS Safety Report 9776260 (Version 1)
Quarter: 2013Q4

REPORT INFORMATION
  Report Type: Spontaneous
  Country: IT (occurrence: IT)
  Receive Date: 20131220
  Receipt Date: 20131220
  Transmission Date: 20140711
  Serious: Yes (Hospitalization)
  Sender: FDA-Public Use
  Company Number: IT-WATSON-2013-23454

PATIENT
  Age: 53 Year
  Sex: Female

DRUGS (4)
  1. SERTRALINE (UNKNOWN) [Suspect]
     Indication: DRUG ABUSE
     Dosage: 400 MG, TOTAL
     Route: 048
     Dates: start: 20130712, end: 20130712
  2. FELISON [Suspect]
     Indication: DRUG ABUSE
     Dosage: 30 MG, 11 POSOLOGIC UNIT/TOTAL
     Route: 048
     Dates: start: 20130712, end: 20130712
  3. SEROQUEL [Suspect]
     Indication: DRUG ABUSE
     Dosage: 50 MG, 3 POSOLOGIC UNIT/TOTAL
     Route: 048
     Dates: start: 20130712, end: 20130712
  4. XANAX [Suspect]
     Indication: DRUG ABUSE
     Dosage: 2 MG, 2 POSOLOGIC UNIT/TOTAL
     Route: 048
     Dates: start: 20130712, end: 20130712

REACTIONS (3)
  - Bradyphrenia [Recovered/Resolved]
  - Bradykinesia [Recovered/Resolved]
  - Drug abuse [Recovered/Resolved]
